FAERS Safety Report 18163912 (Version 1)
Quarter: 2020Q3

REPORT INFORMATION
  Report Type: Spontaneous
  Country: US (occurrence: US)
  Receive Date: 20200818
  Receipt Date: 20200818
  Transmission Date: 20201103
  Serious: Yes (Other)
  Sender: FDA-Public Use
  Company Number: US-OTSUKA-2019_014231

PATIENT
  Sex: Female

DRUGS (12)
  1. TRAZODONE [Concomitant]
     Active Substance: TRAZODONE HYDROCHLORIDE
     Indication: INSOMNIA
     Dosage: 50 MG, QHS
     Route: 048
  2. BENZTROPINE. [Concomitant]
     Active Substance: BENZTROPINE
     Indication: PRODUCT USED FOR UNKNOWN INDICATION
     Dosage: 1 DF, BID
     Route: 048
     Dates: start: 20140404
  3. CARBAMAZEPINE. [Concomitant]
     Active Substance: CARBAMAZEPINE
     Dosage: 200 MG, IN AFTERNOON
     Route: 048
  4. BENZTROPINE. [Concomitant]
     Active Substance: BENZTROPINE
     Dosage: 1 DF, BID
     Route: 048
     Dates: start: 20140212
  5. CARBAMAZEPINE. [Concomitant]
     Active Substance: CARBAMAZEPINE
     Indication: PRODUCT USED FOR UNKNOWN INDICATION
     Dosage: 400 MG, QAM
     Route: 048
  6. CARBAMAZEPINE. [Concomitant]
     Active Substance: CARBAMAZEPINE
     Dosage: 400 MG, QPM
     Route: 048
  7. AMBIEN [Concomitant]
     Active Substance: ZOLPIDEM TARTRATE
     Indication: INSOMNIA
     Dosage: 10 MG, QHS, PRN
     Route: 048
  8. SONATA [Concomitant]
     Active Substance: ZALEPLON
     Indication: PRODUCT USED FOR UNKNOWN INDICATION
     Dosage: 10 MG, UNK
     Route: 065
     Dates: start: 20140404
  9. ARIPIPRAZOLE. [Concomitant]
     Active Substance: ARIPIPRAZOLE
     Indication: MOOD ALTERED
     Dosage: UNK
     Route: 065
     Dates: start: 2015
  10. EPITOL [Concomitant]
     Active Substance: CARBAMAZEPINE
     Indication: PRODUCT USED FOR UNKNOWN INDICATION
     Dosage: UNK
     Route: 048
  11. ABILIFY [Suspect]
     Active Substance: ARIPIPRAZOLE
     Indication: BIPOLAR DISORDER
     Dosage: 30 MG, QD
     Route: 048
     Dates: start: 200301, end: 201804
  12. XANAX [Concomitant]
     Active Substance: ALPRAZOLAM
     Indication: ANXIETY
     Dosage: 1 MG, BID
     Route: 065

REACTIONS (9)
  - Economic problem [Unknown]
  - Suicidal ideation [Recovered/Resolved]
  - Gambling disorder [Recovered/Resolved]
  - Homeless [Unknown]
  - Compulsive shopping [Recovered/Resolved]
  - Obsessive-compulsive disorder [Recovered/Resolved]
  - Hypersexuality [Unknown]
  - Compulsive sexual behaviour [Recovered/Resolved]
  - Suicide attempt [Recovered/Resolved]

NARRATIVE: CASE EVENT DATE: 2003
